FAERS Safety Report 9483129 (Version 1)
Quarter: 2013Q3

REPORT INFORMATION
  Report Type: Spontaneous
  Country: US (occurrence: US)
  Receive Date: 20130828
  Receipt Date: 20130828
  Transmission Date: 20140515
  Serious: Yes (Hospitalization)
  Sender: FDA-Public Use
  Company Number: US-AMGEN-US139215

PATIENT
  Age: 52 Year
  Sex: Female

DRUGS (2)
  1. ENBREL [Suspect]
     Indication: RHEUMATOID ARTHRITIS
     Dosage: 25 MG, 2 TIMES/WK
     Route: 065
  2. NSAIDS [Concomitant]
     Dosage: UNK UNK, UNK
     Route: 065

REACTIONS (6)
  - Pneumonia [Unknown]
  - Lung infection [Unknown]
  - Bronchitis [Unknown]
  - Viral infection [Unknown]
  - Influenza [Unknown]
  - Pyrexia [Unknown]
